FAERS Safety Report 12461595 (Version 4)
Quarter: 2016Q3

REPORT INFORMATION
  Report Type: Report from Study
  Country: JP (occurrence: JP)
  Receive Date: 20160613
  Receipt Date: 20160916
  Transmission Date: 20161109
  Serious: Yes (Death, Other)
  Sender: FDA-Public Use
  Company Number: JP-PFIZER INC-2016292127

PATIENT
  Age: 63 Year
  Sex: Male

DRUGS (12)
  1. DAIKENCHUTO [Concomitant]
     Active Substance: HERBALS
     Indication: ABDOMINAL DISTENSION
     Dosage: 2.5 G, 3X/DAY
     Dates: start: 20140403, end: 20140423
  2. TYGACIL [Suspect]
     Active Substance: TIGECYCLINE
     Dosage: 50 MG, 1X/DAY (FOR 60 MIN)
     Route: 041
     Dates: start: 20140421, end: 20140421
  3. CEFEPIME [Suspect]
     Active Substance: CEFEPIME HYDROCHLORIDE
     Indication: ANTIBIOTIC THERAPY
     Dosage: 2 G, 2X/DAY
     Route: 041
     Dates: start: 20140420, end: 20140423
  4. AMLODIPINE [Concomitant]
     Active Substance: AMLODIPINE BESYLATE
     Indication: HYPERTENSION
     Dosage: 5 MG, DAILY
     Route: 048
     Dates: start: 20140311, end: 20160423
  5. TYGACIL [Suspect]
     Active Substance: TIGECYCLINE
     Indication: SEPSIS
     Dosage: 100 MG, 1X/DAY (FOR 60 MIN)
     Route: 041
     Dates: start: 20140421, end: 20140421
  6. TYGACIL [Suspect]
     Active Substance: TIGECYCLINE
     Dosage: 50 MG, 2X/DAY (FOR 60 MIN PER DOSE)
     Route: 041
     Dates: start: 20140422, end: 20140423
  7. RISPERDAL [Suspect]
     Active Substance: RISPERIDONE
     Indication: DELIRIUM
     Dosage: 2.5 G, 3X/DAY
     Dates: start: 20140414, end: 20140423
  8. AMIKACIN [Concomitant]
     Active Substance: AMIKACIN
     Indication: ANTIBIOTIC THERAPY
     Dosage: 200 MG, DAILY
     Dates: start: 20140420, end: 20140423
  9. NEXIUM [Concomitant]
     Active Substance: ESOMEPRAZOLE MAGNESIUM
     Indication: GASTROOESOPHAGEAL REFLUX DISEASE
     Dosage: 20 MG, DAILY
     Route: 048
     Dates: start: 20140321, end: 20140423
  10. EQUA [Concomitant]
     Active Substance: VILDAGLIPTIN
     Indication: DIABETES MELLITUS
     Dosage: 50 MG, 1X/DAY
     Route: 048
     Dates: start: 20140324, end: 20140423
  11. LASIX [Concomitant]
     Active Substance: FUROSEMIDE
     Indication: OEDEMA DUE TO CARDIAC DISEASE
     Dosage: 20 MG, 1X/DAY
     Dates: start: 20140319, end: 20140423
  12. GASMOTIN [Concomitant]
     Active Substance: MOSAPRIDE CITRATE
     Indication: CHRONIC GASTRITIS
     Dosage: 5 MG, 3X/DAY
     Route: 048
     Dates: start: 20140311, end: 20140423

REACTIONS (2)
  - Sepsis [Fatal]
  - Seizure [Not Recovered/Not Resolved]

NARRATIVE: CASE EVENT DATE: 20140423
